FAERS Safety Report 10255222 (Version 1)
Quarter: 2014Q2

REPORT INFORMATION
  Report Type: Spontaneous
  Country: US (occurrence: US)
  Receive Date: 20140624
  Receipt Date: 20140624
  Transmission Date: 20141212
  Serious: No
  Sender: FDA-Public Use
  Company Number: US-B.I. PHARMACEUTICALS,INC./RIDGEFIELD-2014-BI-26425BP

PATIENT
  Age: 74 Year
  Sex: Female
  Weight: 57 kg

DRUGS (21)
  1. SPIRIVA [Suspect]
     Indication: CHRONIC OBSTRUCTIVE PULMONARY DISEASE
     Dosage: 18 MCG
     Route: 055
     Dates: start: 201402
  2. NITROFURANTOIN [Concomitant]
     Indication: CYSTITIS
     Dosage: 50 MG
     Route: 048
     Dates: start: 1988
  3. SYNTHROID [Concomitant]
     Indication: HYPOTHYROIDISM
     Dosage: 75 MCG
     Route: 048
     Dates: start: 1974
  4. RAMIPRIL [Concomitant]
     Dosage: 20 MG
     Route: 048
     Dates: start: 2009
  5. NOVOLOG [Concomitant]
     Indication: TYPE 1 DIABETES MELLITUS
     Dosage: FORMULATION: SUBCUTANEOUS
     Route: 058
     Dates: start: 1994
  6. LANTUS [Concomitant]
     Indication: TYPE 1 DIABETES MELLITUS
     Dosage: FORMULATION: SUBCUTANEOUS; DOSE PER APPLICATION AND DAILY DOSE: 12 UNITS IN THE AM AND 10 UNITS AT N
     Route: 058
     Dates: start: 1994
  7. TAZTIA XT [Concomitant]
     Dosage: 300 MG
     Route: 048
     Dates: start: 2008
  8. VESICARE [Concomitant]
     Indication: URINARY INCONTINENCE
     Dosage: 5 MG
     Route: 048
     Dates: start: 201211
  9. ATORVASTATIN [Concomitant]
     Indication: BLOOD CHOLESTEROL INCREASED
     Dosage: 20 MG
     Route: 048
     Dates: start: 2009
  10. BISOPROLOL [Concomitant]
     Dosage: 10 MG
     Route: 048
     Dates: start: 201402
  11. DIOVAN [Concomitant]
     Dosage: 160 MG
     Route: 048
     Dates: start: 2009
  12. ASPIRIN [Concomitant]
     Dosage: 81 MG
     Route: 048
  13. CALCIUM CARBONATE VIT D [Concomitant]
     Indication: OSTEOPENIA
     Dosage: 600 MG
     Route: 048
     Dates: start: 1996
  14. VITAMIN D 3 [Concomitant]
     Indication: OSTEOPENIA
     Dosage: 2000 U
     Route: 048
  15. FISH OIL [Concomitant]
     Dosage: 2400 MG
     Route: 048
  16. MULTIVITAMIN [WITH LICOPENE] [Concomitant]
     Route: 048
  17. [MULTIVITAMIN WITH] LICOPENE [Concomitant]
     Route: 048
  18. FUROSEMIDE [Concomitant]
     Indication: CARDIAC FAILURE CONGESTIVE
     Dosage: 20 MG
     Route: 048
     Dates: start: 201402
  19. MUCINEX [Concomitant]
     Indication: PNEUMONIA
     Dosage: 2400 MG
     Route: 048
     Dates: start: 201402
  20. SYMBICORT [Concomitant]
     Indication: CHRONIC OBSTRUCTIVE PULMONARY DISEASE
     Dosage: 2 PUF
     Route: 055
     Dates: start: 201402
  21. VENTOLIN [Concomitant]
     Dosage: 12 PUF
     Route: 055
     Dates: start: 201402

REACTIONS (2)
  - Eye pain [Unknown]
  - Dizziness [Unknown]
